FAERS Safety Report 8225783-4 (Version None)
Quarter: 2012Q1

REPORT INFORMATION
  Report Type: 
  Country: None (occurrence: None)
  Receive Date: 20120321
  Receipt Date: 20120309
  Transmission Date: 20120608
  Serious: Yes (Disabling)
  Sender: FDA-Public Use
  Company Number: US-ELI_LILLY_AND_COMPANY-US201203003685

PATIENT
  Sex: Female

DRUGS (5)
  1. ONGLYZA [Concomitant]
     Dosage: UNK, EACH MORNING
  2. HUMALOG [Suspect]
     Dosage: 8 U, QD
     Dates: start: 20110901
  3. HUMALOG [Suspect]
     Indication: TYPE 2 DIABETES MELLITUS
     Dosage: 8 U, QD
     Dates: start: 20110901
  4. HUMALOG MIX 75/25 [Suspect]
     Indication: TYPE 2 DIABETES MELLITUS
     Dosage: UNK UNK, BID
     Dates: end: 20110901
  5. LANTUS [Concomitant]
     Dosage: 10 U, EACH EVENING

REACTIONS (4)
  - BLINDNESS [None]
  - EYE DISORDER [None]
  - HYPOACUSIS [None]
  - BACK PAIN [None]
